FAERS Safety Report 9581364 (Version 1)
Quarter: 2013Q4

REPORT INFORMATION
  Report Type: Spontaneous
  Country: JP (occurrence: JP)
  Receive Date: 20131002
  Receipt Date: 20131002
  Transmission Date: 20140711
  Serious: Yes (Life-Threatening, Hospitalization, Disabling)
  Sender: FDA-Public Use
  Company Number: JP-GLAXOSMITHKLINE-B0886720A

PATIENT
  Age: 69 Year
  Sex: Female

DRUGS (11)
  1. LAMICTAL [Suspect]
     Indication: EPILEPSY
     Dosage: 25MG ALTERNATE DAYS
     Route: 048
  2. LAMICTAL [Suspect]
     Indication: EPILEPSY
     Dosage: 25MG PER DAY
     Route: 048
     Dates: start: 20130215, end: 20130307
  3. DEPAKENE-R [Concomitant]
     Dosage: 400MG TWICE PER DAY
     Route: 048
     Dates: end: 20130314
  4. CRESTOR [Concomitant]
     Dosage: 2.5MG PER DAY
     Route: 048
     Dates: end: 20130314
  5. CHINESE MEDICINE [Concomitant]
     Dosage: 5G PER DAY
     Route: 048
     Dates: end: 20130314
  6. ARICEPT [Concomitant]
     Dosage: 5MG PER DAY
     Route: 048
     Dates: end: 20130314
  7. KIPRES [Concomitant]
     Route: 048
  8. PRAZAXA [Concomitant]
     Route: 048
  9. SPIRONOLACTONE [Concomitant]
     Route: 048
  10. FUROSEMIDE [Concomitant]
     Route: 065
  11. NEXIUM [Concomitant]
     Route: 048

REACTIONS (19)
  - Stevens-Johnson syndrome [Recovering/Resolving]
  - Toxic epidermal necrolysis [Recovering/Resolving]
  - Pyrexia [Recovering/Resolving]
  - Rash generalised [Recovering/Resolving]
  - Skin erosion [Recovering/Resolving]
  - Blister [Recovering/Resolving]
  - Nausea [Unknown]
  - Blepharosynechia [Recovering/Resolving]
  - Somnolence [Recovering/Resolving]
  - Oral mucosa erosion [Recovering/Resolving]
  - Generalised erythema [Recovering/Resolving]
  - Apathy [Recovering/Resolving]
  - Vulvar erosion [Recovering/Resolving]
  - Eyelid erosion [Recovering/Resolving]
  - Swelling face [Recovering/Resolving]
  - Oral pain [Recovering/Resolving]
  - Erythema [Recovering/Resolving]
  - Eyelid function disorder [Recovering/Resolving]
  - Eyelid oedema [Recovering/Resolving]
